FAERS Safety Report 17113683 (Version 1)
Quarter: 2019Q4

REPORT INFORMATION
  Report Type: Spontaneous
  Country: GB (occurrence: GB)
  Receive Date: 20191205
  Receipt Date: 20191205
  Transmission Date: 20200122
  Serious: Yes (Other)
  Sender: FDA-Public Use
  Company Number: GB-SA-2019SA332821

PATIENT
  Age: 44 Year
  Sex: Female

DRUGS (1)
  1. LEMTRADA [Suspect]
     Active Substance: ALEMTUZUMAB
     Indication: MULTIPLE SCLEROSIS
     Dosage: 12 MG, UNK
     Route: 041
     Dates: start: 201602

REACTIONS (4)
  - Localised infection [Not Recovered/Not Resolved]
  - Pain in extremity [Not Recovered/Not Resolved]
  - Wound abscess [Not Recovered/Not Resolved]
  - Limb injury [Not Recovered/Not Resolved]

NARRATIVE: CASE EVENT DATE: 201910
